FAERS Safety Report 17129707 (Version 2)
Quarter: 2021Q1

REPORT INFORMATION
  Report Type: Spontaneous
  Country: CA (occurrence: CA)
  Receive Date: 20191209
  Receipt Date: 20210121
  Transmission Date: 20210419
  Serious: Yes (Life-Threatening)
  Sender: FDA-Public Use
  Company Number: CA-ROCHE-2484993

PATIENT
  Age: 45 Year
  Sex: Female

DRUGS (47)
  1. CELLCEPT [Suspect]
     Active Substance: MYCOPHENOLATE MOFETIL\MYCOPHENOLATE MOFETIL HYDROCHLORIDE
     Route: 048
  2. CELLCEPT [Suspect]
     Active Substance: MYCOPHENOLATE MOFETIL\MYCOPHENOLATE MOFETIL HYDROCHLORIDE
     Route: 048
  3. ENBREL [Suspect]
     Active Substance: ETANERCEPT
     Route: 058
  4. PROGRAF [Suspect]
     Active Substance: TACROLIMUS
     Indication: TRANSPLANT
     Route: 048
  5. PROGRAF [Suspect]
     Active Substance: TACROLIMUS
     Route: 048
  6. PROGRAF [Suspect]
     Active Substance: TACROLIMUS
     Route: 048
  7. DACLIZUMAB [Suspect]
     Active Substance: DACLIZUMAB
     Indication: PRODUCT USED FOR UNKNOWN INDICATION
     Route: 042
  8. ENBREL [Suspect]
     Active Substance: ETANERCEPT
     Route: 058
  9. PROGRAF [Suspect]
     Active Substance: TACROLIMUS
     Route: 048
  10. PROGRAF [Suspect]
     Active Substance: TACROLIMUS
     Route: 048
  11. PROGRAF [Suspect]
     Active Substance: TACROLIMUS
     Route: 048
  12. PROGRAF [Suspect]
     Active Substance: TACROLIMUS
     Route: 048
  13. SULFASALAZINE. [Suspect]
     Active Substance: SULFASALAZINE
     Indication: PRODUCT USED FOR UNKNOWN INDICATION
     Route: 065
  14. CELLCEPT [Suspect]
     Active Substance: MYCOPHENOLATE MOFETIL\MYCOPHENOLATE MOFETIL HYDROCHLORIDE
     Indication: TRANSPLANT
     Route: 048
  15. CELLCEPT [Suspect]
     Active Substance: MYCOPHENOLATE MOFETIL\MYCOPHENOLATE MOFETIL HYDROCHLORIDE
     Route: 048
  16. ENBREL [Suspect]
     Active Substance: ETANERCEPT
     Route: 048
  17. PROGRAF [Suspect]
     Active Substance: TACROLIMUS
     Indication: PRODUCT USED FOR UNKNOWN INDICATION
     Route: 048
  18. PROGRAF [Suspect]
     Active Substance: TACROLIMUS
     Route: 048
  19. CELLCEPT [Suspect]
     Active Substance: MYCOPHENOLATE MOFETIL\MYCOPHENOLATE MOFETIL HYDROCHLORIDE
     Indication: PRODUCT USED FOR UNKNOWN INDICATION
     Route: 048
  20. DACLIZUMAB [Suspect]
     Active Substance: DACLIZUMAB
     Indication: TRANSPLANT
     Route: 042
  21. ENBREL [Suspect]
     Active Substance: ETANERCEPT
     Route: 048
  22. NEORAL [Suspect]
     Active Substance: CYCLOSPORINE
     Indication: TRANSPLANT
     Route: 065
  23. PROGRAF [Suspect]
     Active Substance: TACROLIMUS
     Route: 048
  24. PROGRAF [Suspect]
     Active Substance: TACROLIMUS
     Route: 048
  25. REMICADE [Suspect]
     Active Substance: INFLIXIMAB
     Indication: PRODUCT USED FOR UNKNOWN INDICATION
     Route: 042
  26. DACLIZUMAB [Suspect]
     Active Substance: DACLIZUMAB
     Route: 042
  27. ENBREL [Suspect]
     Active Substance: ETANERCEPT
     Route: 058
  28. PROGRAF [Suspect]
     Active Substance: TACROLIMUS
     Route: 048
  29. PROGRAF [Suspect]
     Active Substance: TACROLIMUS
     Route: 048
  30. CELLCEPT [Suspect]
     Active Substance: MYCOPHENOLATE MOFETIL\MYCOPHENOLATE MOFETIL HYDROCHLORIDE
     Route: 048
  31. ENBREL [Suspect]
     Active Substance: ETANERCEPT
     Route: 058
  32. PROGRAF [Suspect]
     Active Substance: TACROLIMUS
     Route: 048
  33. PROGRAF [Suspect]
     Active Substance: TACROLIMUS
     Route: 048
  34. PROGRAF [Suspect]
     Active Substance: TACROLIMUS
     Route: 048
  35. CELLCEPT [Suspect]
     Active Substance: MYCOPHENOLATE MOFETIL\MYCOPHENOLATE MOFETIL HYDROCHLORIDE
     Route: 048
  36. ENBREL [Suspect]
     Active Substance: ETANERCEPT
     Route: 048
  37. ENBREL [Suspect]
     Active Substance: ETANERCEPT
     Route: 058
  38. PROGRAF [Suspect]
     Active Substance: TACROLIMUS
     Route: 048
  39. PROGRAF [Suspect]
     Active Substance: TACROLIMUS
     Route: 048
  40. PROGRAF [Suspect]
     Active Substance: TACROLIMUS
     Route: 065
  41. RAPAMUNE [Suspect]
     Active Substance: SIROLIMUS
     Indication: TRANSPLANT
     Route: 065
  42. CELLCEPT [Suspect]
     Active Substance: MYCOPHENOLATE MOFETIL\MYCOPHENOLATE MOFETIL HYDROCHLORIDE
     Indication: TRANSPLANT
     Route: 048
  43. CELLCEPT [Suspect]
     Active Substance: MYCOPHENOLATE MOFETIL\MYCOPHENOLATE MOFETIL HYDROCHLORIDE
     Indication: TRANSPLANT
     Route: 048
  44. ENBREL [Suspect]
     Active Substance: ETANERCEPT
     Indication: PRODUCT USED FOR UNKNOWN INDICATION
     Route: 058
  45. ENBREL [Suspect]
     Active Substance: ETANERCEPT
     Route: 058
  46. PROGRAF [Suspect]
     Active Substance: TACROLIMUS
     Route: 048
  47. PROGRAF [Suspect]
     Active Substance: TACROLIMUS
     Route: 048

REACTIONS (12)
  - Liver function test abnormal [Not Recovered/Not Resolved]
  - Overdose [Unknown]
  - Sleep disorder due to general medical condition, insomnia type [Not Recovered/Not Resolved]
  - Pain [Not Recovered/Not Resolved]
  - Pneumonia [Not Recovered/Not Resolved]
  - Transplant rejection [Not Recovered/Not Resolved]
  - Condition aggravated [Not Recovered/Not Resolved]
  - Rheumatoid arthritis [Not Recovered/Not Resolved]
  - Acne [Not Recovered/Not Resolved]
  - Alopecia [Not Recovered/Not Resolved]
  - Ovarian cyst [Not Recovered/Not Resolved]
  - Transplant dysfunction [Not Recovered/Not Resolved]
